FAERS Safety Report 15885308 (Version 3)
Quarter: 2019Q1

REPORT INFORMATION
  Report Type: Report from Study
  Country: ES (occurrence: ES)
  Receive Date: 20190129
  Receipt Date: 20190211
  Transmission Date: 20190417
  Serious: Yes (Hospitalization)
  Sender: FDA-Public Use
  Company Number: ES-ROCHE-2253878

PATIENT
  Age: 72 Year
  Sex: Male
  Weight: 70 kg

DRUGS (12)
  1. DERIPIL (SPAIN) [Concomitant]
     Indication: PROPHYLAXIS
     Dosage: DOSE: 1 OTHER
     Route: 061
     Dates: start: 20181025
  2. ROMILAR (SPAIN) [Concomitant]
     Indication: PROPHYLAXIS
     Route: 048
     Dates: start: 20180711
  3. DERIPIL (SPAIN) [Concomitant]
     Indication: PRURITUS
     Dosage: DOSE: 1 OTHER
     Route: 061
     Dates: start: 20181004, end: 20181024
  4. ATEZOLIZUMAB. [Suspect]
     Active Substance: ATEZOLIZUMAB
     Indication: NON-SMALL CELL LUNG CANCER
     Dosage: MOST RECENT DOSE PRIOR TO EVENT ONSET ON 16/JAN/2019 AT 16:59
     Route: 042
     Dates: start: 20180214
  5. HIDROCLOROTIAZIDA [Concomitant]
     Active Substance: HYDROCHLOROTHIAZIDE
     Route: 048
  6. PREGABALINE [Concomitant]
     Active Substance: PREGABALIN
     Indication: PROPHYLAXIS
     Route: 048
     Dates: start: 20180711
  7. FLUMIL (SPAIN) [Concomitant]
     Indication: PROPHYLAXIS
     Route: 048
     Dates: start: 20180711
  8. VALSARTAN. [Concomitant]
     Active Substance: VALSARTAN
     Route: 048
  9. METOCLOPRAMIDE. [Concomitant]
     Active Substance: METOCLOPRAMIDE
     Route: 042
     Dates: start: 20190123, end: 20190128
  10. LOPERAMIDE [Concomitant]
     Active Substance: LOPERAMIDE
     Indication: PROPHYLAXIS
     Route: 048
     Dates: start: 20180711
  11. PARACETAMOL [Concomitant]
     Active Substance: ACETAMINOPHEN
     Indication: PROPHYLAXIS
     Route: 048
     Dates: start: 20180711
  12. PARACETAMOL [Concomitant]
     Active Substance: ACETAMINOPHEN
     Route: 042
     Dates: start: 20190123, end: 20190129

REACTIONS (1)
  - Respiratory tract infection [Recovering/Resolving]

NARRATIVE: CASE EVENT DATE: 20190116
